FAERS Safety Report 16647387 (Version 2)
Quarter: 2019Q3

REPORT INFORMATION
  Report Type: Spontaneous
  Country: EG (occurrence: EG)
  Receive Date: 20190730
  Receipt Date: 20190807
  Transmission Date: 20191004
  Serious: Yes (Other)
  Sender: FDA-Public Use
  Company Number: EG-PFIZER INC-2019321522

PATIENT
  Age: 59 Year
  Sex: Female

DRUGS (1)
  1. ADRIAMYCIN [Suspect]
     Active Substance: DOXORUBICIN HYDROCHLORIDE
     Indication: BREAST CANCER
     Dosage: UNK

REACTIONS (6)
  - Ischaemic stroke [Recovered/Resolved]
  - Cardiac failure [Recovered/Resolved]
  - Left ventricular dysfunction [Unknown]
  - Systolic dysfunction [Recovered/Resolved]
  - Embolic stroke [Recovered/Resolved]
  - Cardiac ventricular thrombosis [Unknown]
